FAERS Safety Report 8294079-7 (Version None)
Quarter: 2012Q2

REPORT INFORMATION
  Report Type: 
  Country: None (occurrence: None)
  Receive Date: 20120418
  Receipt Date: 20120410
  Transmission Date: 20120825
  Serious: Yes (Other)
  Sender: FDA-Public Use
  Company Number: US-CELGENEUS-163-21880-12020901

PATIENT
  Age: 68 Year
  Sex: Male
  Weight: 78.4 kg

DRUGS (77)
  1. REVLIMID [Suspect]
     Dosage: 25 MILLIGRAM
     Route: 048
     Dates: start: 20060323, end: 20060412
  2. DEXAMETHASONE [Suspect]
     Dosage: 40 MILLIGRAM
     Route: 048
     Dates: start: 20060223, end: 20060314
  3. ASPIRIN [Concomitant]
     Dosage: 325 MILLIGRAM
     Route: 048
  4. COUMADIN [Concomitant]
     Dosage: 2.5-10MG
     Route: 065
  5. PROTONIX [Concomitant]
     Dosage: 40
     Route: 041
  6. LACTOBACILLUS GG [Concomitant]
     Dosage: 1
     Route: 048
  7. LORTAB [Concomitant]
     Indication: PAIN
     Dosage: 1
     Route: 048
  8. AMIODARONE HCL [Concomitant]
     Dosage: 100 MILLIGRAM
     Route: 048
  9. LORAZEPAM [Concomitant]
     Indication: ANXIETY
     Dosage: 1 MILLIGRAM
     Route: 065
  10. HEPARIN [Concomitant]
     Indication: ATRIAL FIBRILLATION
     Dosage: 4000 UNITS
     Route: 058
  11. REVLIMID [Suspect]
     Dosage: 25 MILLIGRAM
     Route: 048
     Dates: start: 20060223, end: 20060315
  12. DEXAMETHASONE [Suspect]
     Dosage: 40 MILLIGRAM
     Route: 048
     Dates: start: 20060824, end: 20060912
  13. ASPIRIN [Concomitant]
     Dosage: 81 MILLIGRAM
     Route: 048
  14. NIFEREX-150 FORTE [Concomitant]
     Dosage: 1 CAPSULE
     Route: 048
  15. GUAIFENESIN AND DEXTROMETHORPHAN HBR [Concomitant]
     Indication: COUGH
     Dosage: 10 MILLILITER
     Route: 048
  16. KIONEX [Concomitant]
     Dosage: 15 GRAM
     Route: 048
  17. PAMIDRONATE DISODIUM [Concomitant]
     Route: 065
  18. REVLIMID [Suspect]
     Dosage: 25 MILLIGRAM
     Route: 048
     Dates: start: 20061221, end: 20070110
  19. REVLIMID [Suspect]
     Dosage: 25 MILLIGRAM
     Route: 048
     Dates: start: 20070118, end: 20070502
  20. DEXAMETHASONE [Suspect]
     Dosage: 20 MILLIGRAM
     Route: 048
     Dates: start: 20070830, end: 20070918
  21. OS-CAL 500 + D [Concomitant]
     Dosage: 1 TABLET
     Route: 048
  22. PERFUSIONIST'S ACD FORMULA [Concomitant]
     Dosage: 5 MILLILITER
     Route: 041
  23. DIPHENHYDRAMINE HCL [Concomitant]
     Indication: PREMEDICATION
     Dosage: 25 MILLIGRAM
     Route: 048
  24. VITAMIN D [Concomitant]
     Dosage: 5000UNIT
     Route: 048
  25. ALBUTEROL SULFATE [Concomitant]
     Dosage: 2.5 MILLIGRAM
     Route: 055
  26. AMIODARONE HCL [Concomitant]
     Dosage: 200 MILLIGRAM
     Route: 048
  27. CHLORASEPTIC [Concomitant]
     Dosage: 1 SPRAY
     Route: 048
  28. MAG OXIDE [Concomitant]
     Dosage: 100 MILLIGRAM
     Route: 048
  29. SKELAXIN [Concomitant]
     Dosage: 800 MILLIGRAM
     Route: 065
  30. WHOLE BLOOD [Concomitant]
     Indication: FULL BLOOD COUNT DECREASED
     Route: 041
  31. REVLIMID [Suspect]
     Dosage: 25 MILLIGRAM
     Route: 048
     Dates: start: 20061019, end: 20061108
  32. REVLIMID [Suspect]
     Dosage: 25 MILLIGRAM
     Route: 048
     Dates: start: 20070607, end: 20070822
  33. DEXAMETHASONE [Suspect]
     Dosage: 20 MILLIGRAM
     Route: 048
     Dates: start: 20061019, end: 20070501
  34. DEXAMETHASONE [Suspect]
     Dosage: 20 MILLIGRAM
     Route: 048
     Dates: start: 20070607, end: 20070821
  35. DEXAMETHASONE [Suspect]
     Dosage: 40 MILLIGRAM
     Route: 065
  36. MEGACE [Concomitant]
     Dosage: 400MG/10ML
     Route: 048
  37. MAGIC MOUTHWASH [Concomitant]
     Dosage: 5 MILLILITER
     Route: 048
  38. BACTRIM DS [Concomitant]
     Dosage: 800-160MG
     Route: 048
  39. FLOMAX [Concomitant]
     Dosage: .4 MILLIGRAM
     Route: 048
  40. LEXAPRO [Concomitant]
     Dosage: 10 MILLIGRAM
     Route: 048
  41. MAG OXIDE [Concomitant]
     Dosage: 400 MILLIGRAM
     Route: 048
  42. PRILOSEC [Concomitant]
     Dosage: 20 MILLIGRAM
     Route: 065
  43. FLUDROCORTISONE ACETATE [Concomitant]
     Dosage: .1 MILLIGRAM
     Route: 065
  44. RED BLOOD CELLS [Concomitant]
     Indication: FULL BLOOD COUNT DECREASED
     Route: 041
  45. DEXAMETHASONE [Suspect]
     Dosage: 40 MILLIGRAM
     Route: 048
     Dates: start: 20060629, end: 20060718
  46. LOVENOX [Concomitant]
     Dosage: 40 MILLIGRAM
     Route: 058
  47. MEGACE [Concomitant]
     Dosage: 625MG/5ML
     Route: 048
  48. OXYCODONE HCL [Concomitant]
     Dosage: 5 MILLIGRAM
     Route: 065
  49. REVLIMID [Suspect]
     Dosage: 25 MILLIGRAM
     Route: 048
     Dates: start: 20060420, end: 20060510
  50. REVLIMID [Suspect]
     Dosage: 25 MILLIGRAM
     Route: 048
     Dates: start: 20070510, end: 20070515
  51. DEXAMETHASONE [Suspect]
     Dosage: 40 MILLIGRAM
     Route: 048
     Dates: start: 20060420, end: 20060509
  52. DEXAMETHASONE [Suspect]
     Dosage: 20 MILLIGRAM
     Route: 048
     Dates: start: 20060921, end: 20061010
  53. MYCAMINE [Concomitant]
     Dosage: 100 MILLILITER
     Route: 041
  54. EFFEXOR XR [Concomitant]
     Dosage: 150 MILLIGRAM
     Route: 048
     Dates: start: 20070524
  55. IRON SULFATETHIAMIN COMPOUND TAB [Concomitant]
     Dosage: 325 MILLIGRAM
     Route: 065
  56. TOPROL-XL [Concomitant]
     Dosage: 25 MILLIGRAM
     Route: 048
  57. REVLIMID [Suspect]
     Dosage: 25 MILLIGRAM
     Route: 048
     Dates: start: 20060629, end: 20060719
  58. REVLIMID [Suspect]
     Dosage: 25 MILLIGRAM
     Route: 048
     Dates: start: 20060727, end: 20060816
  59. REVLIMID [Suspect]
     Dosage: 25 MILLIGRAM
     Route: 048
     Dates: start: 20060921, end: 20061011
  60. REVLIMID [Suspect]
     Dosage: 25 MILLIGRAM
     Route: 048
     Dates: start: 20070830, end: 20070919
  61. DEXAMETHASONE [Suspect]
     Dosage: 40 MILLIGRAM
     Route: 048
     Dates: start: 20060727, end: 20060815
  62. PHENYLEPHRINE HCL [Concomitant]
     Route: 065
  63. NEPHROCAPS [Concomitant]
     Dosage: 1 CAPSULE
     Route: 048
  64. FINASTERIDE [Concomitant]
     Dosage: 5 MILLIGRAM
     Route: 048
  65. REVLIMID [Suspect]
     Dosage: 25 MILLIGRAM
     Route: 048
     Dates: start: 20061122, end: 20061212
  66. DEXAMETHASONE [Suspect]
     Dosage: 40 MILLIGRAM
     Route: 048
     Dates: start: 20060323, end: 20060411
  67. DEXAMETHASONE [Suspect]
     Dosage: 20 MILLIGRAM
     Route: 048
     Dates: start: 20070510, end: 20070513
  68. THALIDOMIDE [Suspect]
     Dosage: 50 MILLIGRAM
     Route: 048
     Dates: start: 20111214
  69. SODIUM BICARBONATE [Concomitant]
     Dosage: 650 MILLIGRAM
     Route: 065
  70. MEGESTROL ACETATE [Concomitant]
     Dosage: 800 MILLIGRAM
     Route: 048
  71. PANTOPRAZOLE [Concomitant]
     Dosage: 40 MILLIGRAM
     Route: 048
  72. LEVOTHYROXINE SODIUM [Concomitant]
     Dosage: .1 MILLIGRAM
     Route: 048
  73. ACETAMINOPHEN [Concomitant]
     Dosage: 650 MILLIGRAM
     Route: 048
  74. CHLORHEXIDINE GLUCONATE [Concomitant]
     Dosage: 15 MILLILITER
     Route: 048
  75. NEUPOGEN [Concomitant]
     Indication: FULL BLOOD COUNT DECREASED
     Route: 065
  76. PLAVIX [Concomitant]
     Dosage: 75 MILLIGRAM
     Route: 065
  77. PLATELETS [Concomitant]
     Indication: THROMBOCYTOPENIA
     Route: 041

REACTIONS (1)
  - 5Q MINUS SYNDROME [None]
